FAERS Safety Report 8935136 (Version 2)
Quarter: 2013Q2

REPORT INFORMATION
  Report Type: Spontaneous
  Country: US (occurrence: US)
  Receive Date: 20121129
  Receipt Date: 20130415
  Transmission Date: 20140414
  Serious: Yes (Disabling)
  Sender: FDA-Public Use
  Company Number: US-B.I. PHARMACEUTICALS,INC./RIDGEFIELD-2012-BI-01096BP

PATIENT
  Age: 84 Year
  Sex: Female
  Weight: 70.76 kg

DRUGS (3)
  1. PRADAXA [Suspect]
     Indication: CEREBROVASCULAR ACCIDENT PROPHYLAXIS
     Dosage: 300 MG
     Route: 048
     Dates: start: 201107
  2. PRADAXA [Suspect]
     Indication: ATRIAL FIBRILLATION
     Dosage: 150 MG
     Route: 048
  3. PRADAXA [Suspect]
     Dosage: 75 MG
     Route: 048

REACTIONS (3)
  - Epistaxis [Recovered/Resolved]
  - Blood urine present [Not Recovered/Not Resolved]
  - Dyspepsia [Recovered/Resolved]
